FAERS Safety Report 14303367 (Version 1)
Quarter: 2017Q4

REPORT INFORMATION
  Report Type: Spontaneous
  Country: US (occurrence: US)
  Receive Date: 20171219
  Receipt Date: 20171219
  Transmission Date: 20180321
  Serious: Yes (Other)
  Sender: FDA-Public Use
  Company Number: US-OTSUKA-DJ20083372

PATIENT

DRUGS (3)
  1. ABILIFY [Suspect]
     Active Substance: ARIPIPRAZOLE
     Route: 048
  2. ABILIFY [Suspect]
     Active Substance: ARIPIPRAZOLE
     Dosage: UNK
     Route: 048
  3. OPC-14597 [Suspect]
     Active Substance: CILOSTAZOL
     Route: 065

REACTIONS (5)
  - Lip and/or oral cavity cancer [Unknown]
  - Loss of consciousness [Unknown]
  - Blindness transient [Unknown]
  - Seizure [Unknown]
  - Coma [Unknown]
